FAERS Safety Report 16359456 (Version 2)
Quarter: 2019Q2

REPORT INFORMATION
  Report Type: Spontaneous
  Country: US (occurrence: US)
  Receive Date: 20190528
  Receipt Date: 20190615
  Transmission Date: 20190711
  Serious: Yes (Other)
  Sender: FDA-Public Use
  Company Number: US-AUROBINDO-AUR-APL-2019-030575

PATIENT

DRUGS (1)
  1. VALSARTAN TABLETS USP 40MG [Suspect]
     Active Substance: VALSARTAN
     Indication: HYPERTENSION
     Dosage: 1 DOSAGE FORM, DAILY (1 TABLET PER DAY)
     Route: 065
     Dates: start: 20190514, end: 20190516

REACTIONS (4)
  - Kidney infection [Recovered/Resolved]
  - Cystitis [Recovered/Resolved]
  - Vulvovaginal burning sensation [Recovered/Resolved]
  - Abdominal discomfort [Recovered/Resolved]

NARRATIVE: CASE EVENT DATE: 20190515
